FAERS Safety Report 23193340 (Version 1)
Quarter: 2023Q4

REPORT INFORMATION
  Report Type: Spontaneous
  Country: US (occurrence: None)
  Receive Date: 20231116
  Receipt Date: 20231116
  Transmission Date: 20240110
  Serious: Yes (Hospitalization)
  Sender: FDA-Public Use
  Company Number: None

PATIENT
  Sex: Male

DRUGS (9)
  1. VIGABATRIN [Suspect]
     Active Substance: VIGABATRIN
     Indication: Epilepsy
     Dosage: FREQUENCY : TWICE A DAY;?OTHER ROUTE : VIA G TUBE;?
     Route: 050
     Dates: start: 20230828
  2. VALPROATE [Concomitant]
     Active Substance: VALPROIC ACID
  3. CLOBAZAM [Concomitant]
     Active Substance: CLOBAZAM
  4. KEPPRA [Concomitant]
     Active Substance: LEVETIRACETAM
  5. GABAPENTIN [Concomitant]
  6. ALBUTEROL [Concomitant]
  7. MUPIROCIN [Concomitant]
  8. IPRATROPIUM [Concomitant]
     Active Substance: IPRATROPIUM
  9. KETOCONAZOLE [Concomitant]
     Active Substance: KETOCONAZOLE

REACTIONS (5)
  - Pneumonia aspiration [None]
  - Respiratory syncytial virus infection [None]
  - Tremor [None]
  - Tremor [None]
  - Irritability [None]

NARRATIVE: CASE EVENT DATE: 20231010
